FAERS Safety Report 8351843-3 (Version None)
Quarter: 2012Q2

REPORT INFORMATION
  Report Type: 
  Country: None (occurrence: None)
  Receive Date: 20120511
  Receipt Date: 20090817
  Transmission Date: 20120825
  Serious: No
  Sender: FDA-Public Use
  Company Number: 2009BI026102

PATIENT
  Sex: Female

DRUGS (3)
  1. ANTIDEPRESSANT [Concomitant]
  2. TYSABRI [Suspect]
     Indication: MULTIPLE SCLEROSIS
     Route: 042
     Dates: start: 20090121, end: 20100604
  3. TYSABRI [Suspect]
     Route: 042
     Dates: start: 20110901

REACTIONS (8)
  - GAIT DISTURBANCE [None]
  - DRUG INEFFECTIVE [None]
  - CONSTIPATION [None]
  - BALANCE DISORDER [None]
  - NEUROPATHY PERIPHERAL [None]
  - MULTIPLE SCLEROSIS [None]
  - URINARY INCONTINENCE [None]
  - PAIN IN EXTREMITY [None]
